FAERS Safety Report 5849761-5 (Version None)
Quarter: 2008Q3

REPORT INFORMATION
  Report Type: 
  Country: None (occurrence: None)
  Receive Date: 20080819
  Receipt Date: 20080819
  Transmission Date: 20090109
  Serious: Yes (Life-Threatening)
  Sender: FDA-Public Use
  Company Number: JP-ABBOTT-03P-087-0209122-00

PATIENT
  Sex: Male

DRUGS (24)
  1. KALETRA [Suspect]
     Indication: HIV INFECTION
     Route: 048
     Dates: start: 20011105, end: 20061106
  2. KALETRA [Suspect]
     Indication: HIV INFECTION
     Route: 048
     Dates: start: 20061107
  3. DIDANOSINE [Suspect]
     Indication: HIV INFECTION
     Route: 048
     Dates: start: 20010401, end: 20030106
  4. STAVUDINE [Suspect]
     Indication: HIV INFECTION
     Route: 048
     Dates: start: 20010401, end: 20011015
  5. STAVUDINE [Suspect]
     Route: 048
     Dates: start: 20011016, end: 20011104
  6. ABACAVIR SULFATE [Suspect]
     Indication: HIV INFECTION
     Route: 048
     Dates: start: 20011105
  7. EFAVIRENZ [Suspect]
     Indication: HIV INFECTION
     Route: 048
     Dates: start: 20010401, end: 20011104
  8. EFAVIRENZ [Suspect]
     Route: 048
     Dates: start: 20030106, end: 20030317
  9. LAMIVUDINE [Suspect]
     Indication: DRUG USE FOR UNKNOWN INDICATION
     Dates: start: 20030317
  10. SUCRALFATE [Concomitant]
     Indication: STOMACH DISCOMFORT
     Route: 048
     Dates: start: 20010401, end: 20020107
  11. PENTAMIDINE [Concomitant]
     Indication: ANTIFUNGAL PROPHYLAXIS
     Route: 048
     Dates: start: 20010401, end: 20030714
  12. FACTOR IX COMPLEX [Concomitant]
     Indication: DRUG USE FOR UNKNOWN INDICATION
     Dates: start: 20010401
  13. RANITIDINE HYDROCHLORIDE [Concomitant]
     Indication: STOMACH DISCOMFORT
     Route: 048
     Dates: start: 20010401, end: 20010701
  14. TEPRENONE [Concomitant]
     Indication: STOMACH DISCOMFORT
     Route: 048
     Dates: start: 20030108, end: 20030317
  15. DIGESTIVES, INCL ENZYMES [Concomitant]
     Indication: STOMACH DISCOMFORT
     Route: 048
     Dates: start: 20020204
  16. BIFIDOBACTERIUM 4 [Concomitant]
     Indication: STOMACH DISCOMFORT
     Route: 048
     Dates: start: 20020715
  17. ZOLPIDEM TARTRATE [Concomitant]
     Indication: INSOMNIA
     Dates: start: 20030526
  18. RIBOFLAVIN BUTYRATE [Concomitant]
     Indication: HEPATITIS C
     Route: 048
     Dates: start: 20070403
  19. VALPROATE SODIUM [Concomitant]
     Indication: EPILEPSY
     Route: 048
     Dates: start: 20070626
  20. FREEZE DRIED HUMAN BLOOD-COAGULANT FACTOR [Concomitant]
     Indication: FACTOR IX DEFICIENCY
     Route: 042
     Dates: start: 20010401, end: 20070531
  21. FREEZE DRIED HUMAN BLOOD-COAGULANT FACTOR [Concomitant]
     Route: 042
     Dates: start: 20070613
  22. FREEZE DRIED HUMAN BLOOD-COAGULANT FACTOR [Concomitant]
     Route: 042
     Dates: start: 20070601, end: 20070605
  23. FREEZE DRIED HUMAN BLOOD-COAGULANT FACTOR [Concomitant]
     Route: 042
     Dates: start: 20070606, end: 20070612
  24. FAMOTIDINE [Concomitant]
     Indication: PROPHYLAXIS AGAINST GASTROINTESTINAL ULCER
     Dates: start: 20070602, end: 20070606

REACTIONS (7)
  - ANAEMIA [None]
  - BLOOD LACTIC ACID INCREASED [None]
  - CEREBRAL HAEMORRHAGE [None]
  - HAEMOGLOBIN DECREASED [None]
  - HEPATIC FUNCTION ABNORMAL [None]
  - HYPERTENSION [None]
  - IRON DEFICIENCY [None]
